FAERS Safety Report 17874747 (Version 1)
Quarter: 2020Q2

REPORT INFORMATION
  Report Type: Spontaneous
  Country: US (occurrence: US)
  Receive Date: 20200608
  Receipt Date: 20200608
  Transmission Date: 20200714
  Serious: Yes (Hospitalization)
  Sender: FDA-Public Use
  Company Number: None

PATIENT
  Age: 41 Year
  Sex: Female
  Weight: 74.8 kg

DRUGS (10)
  1. PEMBROLIZUMAB. [Suspect]
     Active Substance: PEMBROLIZUMAB
  2. SINGULAIR [Concomitant]
     Active Substance: MONTELUKAST SODIUM
     Dates: start: 20190101
  3. AMITRIPTYLINE [Concomitant]
     Active Substance: AMITRIPTYLINE
     Dates: start: 20200203
  4. EFFEXOR [Concomitant]
     Active Substance: VENLAFAXINE HYDROCHLORIDE
     Dates: start: 20190701
  5. TRAZADONE 75MG [Concomitant]
     Dates: start: 20190701
  6. MORPHINE 15MG [Concomitant]
     Active Substance: MORPHINE
     Dates: start: 20191202
  7. LYRICA [Concomitant]
     Active Substance: PREGABALIN
     Dates: start: 20191202
  8. TOPROL XL [Concomitant]
     Active Substance: METOPROLOL SUCCINATE
     Dates: start: 20200519
  9. BUSPAR 10MG [Concomitant]
     Dates: start: 20190701
  10. ALBUTEROL. [Concomitant]
     Active Substance: ALBUTEROL
     Dates: start: 20160101

REACTIONS (3)
  - Nerve compression [None]
  - Pain in extremity [None]
  - Lymphocele [None]

NARRATIVE: CASE EVENT DATE: 20200527
